FAERS Safety Report 11367736 (Version 1)
Quarter: 2015Q3

REPORT INFORMATION
  Report Type: Spontaneous
  Country: US (occurrence: US)
  Receive Date: 20150811
  Receipt Date: 20150811
  Transmission Date: 20151125
  Serious: No
  Sender: FDA-Public Use
  Company Number: US-ELI_LILLY_AND_COMPANY-US201206005250

PATIENT
  Sex: Male

DRUGS (1)
  1. AXIRON [Suspect]
     Active Substance: TESTOSTERONE
     Indication: BLOOD TESTOSTERONE DECREASED
     Dosage: 60 MG, UNK
     Dates: start: 20120605

REACTIONS (6)
  - Vision blurred [Unknown]
  - Diarrhoea [Unknown]
  - Feeling of body temperature change [Unknown]
  - Blood glucose abnormal [Unknown]
  - Sleep apnoea syndrome [Unknown]
  - Nausea [Unknown]
